FAERS Safety Report 17977637 (Version 2)
Quarter: 2020Q3

REPORT INFORMATION
  Report Type: Report from Study
  Country: US (occurrence: US)
  Receive Date: 20200703
  Receipt Date: 20200706
  Transmission Date: 20201103
  Serious: No
  Sender: FDA-Public Use
  Company Number: US-ELI_LILLY_AND_COMPANY-US202007001231

PATIENT
  Age: 76 Year
  Sex: Female

DRUGS (3)
  1. LANTUS [Concomitant]
     Active Substance: INSULIN GLARGINE
     Indication: TYPE 2 DIABETES MELLITUS
     Dosage: 18?20 U, EACH EVENING (AT NIGHT)
     Route: 065
  2. HUMALOG [Suspect]
     Active Substance: INSULIN LISPRO
     Indication: TYPE 2 DIABETES MELLITUS
     Dosage: 14 U, TID (8?14 UNITS)
     Route: 058
  3. HUMALOG [Suspect]
     Active Substance: INSULIN LISPRO
     Dosage: 14 U, TID (8?14 UNITS)
     Route: 058

REACTIONS (6)
  - Retching [Recovering/Resolving]
  - Diarrhoea [Unknown]
  - Abdominal discomfort [Unknown]
  - Gastric disorder [Unknown]
  - Vomiting [Unknown]
  - Muscle spasms [Unknown]

NARRATIVE: CASE EVENT DATE: 202006
